FAERS Safety Report 25050792 (Version 1)
Quarter: 2025Q1

REPORT INFORMATION
  Report Type: Report from Study
  Country: IT (occurrence: IT)
  Receive Date: 20250307
  Receipt Date: 20250307
  Transmission Date: 20250408
  Serious: Yes (Death, Hospitalization, Other)
  Sender: MERCK SHARP & DOHME LLC
  Company Number: IT-009507513-2502ITA000553

PATIENT
  Age: 56 Year
  Sex: Female

DRUGS (6)
  1. WINREVAIR [Suspect]
     Active Substance: SOTATERCEPT-CSRK
     Indication: Pulmonary hypertension
     Dates: start: 20241023, end: 20241204
  2. WINREVAIR [Suspect]
     Active Substance: SOTATERCEPT-CSRK
  3. WINREVAIR [Suspect]
     Active Substance: SOTATERCEPT-CSRK
  4. WINREVAIR [Suspect]
     Active Substance: SOTATERCEPT-CSRK
  5. TREPROSTINIL SODIUM [Concomitant]
     Active Substance: TREPROSTINIL SODIUM
     Indication: Pulmonary hypertension
     Dates: start: 20240724
  6. RIOCIGUAT [Concomitant]
     Active Substance: RIOCIGUAT
     Indication: Pulmonary hypertension
     Dates: start: 20170712

REACTIONS (6)
  - Death [Fatal]
  - Hypersensitivity vasculitis [Recovered/Resolved]
  - Eosinophilic granulomatosis with polyangiitis [Unknown]
  - Right ventricular failure [Unknown]
  - Neuropathy peripheral [Unknown]
  - Eosinophilia [Unknown]

NARRATIVE: CASE EVENT DATE: 20241201
